FAERS Safety Report 14615164 (Version 2)
Quarter: 2018Q4

REPORT INFORMATION
  Report Type: Spontaneous
  Country: US (occurrence: US)
  Receive Date: 20180308
  Receipt Date: 20181104
  Transmission Date: 20190204
  Serious: No
  Sender: FDA-Public Use
  Company Number: US-ELI_LILLY_AND_COMPANY-US201803003162

PATIENT
  Age: 74 Year
  Sex: Male

DRUGS (6)
  1. TRULICITY [Suspect]
     Active Substance: DULAGLUTIDE
     Indication: TYPE 2 DIABETES MELLITUS
     Dosage: 0.75 MG, UNK
     Route: 065
     Dates: start: 20171211, end: 20180306
  2. TRULICITY [Suspect]
     Active Substance: DULAGLUTIDE
     Indication: TYPE 2 DIABETES MELLITUS
     Dosage: 1.5 MG, UNK
     Route: 065
     Dates: start: 20180306
  3. METFORMIN [Concomitant]
     Active Substance: METFORMIN HYDROCHLORIDE
     Indication: PRODUCT USED FOR UNKNOWN INDICATION
  4. PHENTERMINE. [Concomitant]
     Active Substance: PHENTERMINE
     Indication: TYPE 2 DIABETES MELLITUS
     Dosage: 2 DF, DAILY
  5. GLIMEPIRIDE. [Concomitant]
     Active Substance: GLIMEPIRIDE
     Indication: TYPE 2 DIABETES MELLITUS
     Dosage: UNK, DAILY
  6. TRULICITY [Suspect]
     Active Substance: DULAGLUTIDE
     Dosage: 1.5 MG, UNK
     Route: 065

REACTIONS (4)
  - Injection site pruritus [Recovered/Resolved]
  - Pruritus [Recovered/Resolved]
  - Blood glucose decreased [Unknown]
  - Dry skin [Unknown]

NARRATIVE: CASE EVENT DATE: 201801
